FAERS Safety Report 7209062-X (Version None)
Quarter: 2010Q4

REPORT INFORMATION
  Report Type: 
  Country: None (occurrence: None)
  Receive Date: 20101222
  Receipt Date: 20101207
  Transmission Date: 20110411
  Serious: Yes (Disabling)
  Sender: FDA-Public Use
  Company Number: AUR-APL-2010-03162

PATIENT
  Sex: Male

DRUGS (3)
  1. SIMVASTATIN [Suspect]
     Indication: MYOCARDIAL INFARCTION
     Dosage: 40MG
     Dates: start: 20040101
  2. ATORVASTATIN CALCIUM [Suspect]
     Indication: MYOCARDIAL INFARCTION
     Dosage: 20MG
     Dates: start: 20040101
  3. ^OTHER HEART TABLETS^ [Concomitant]

REACTIONS (4)
  - CHEST PAIN [None]
  - MYALGIA [None]
  - PRODUCT QUALITY ISSUE [None]
  - SKIN INJURY [None]
